FAERS Safety Report 9236832 (Version 1)
Quarter: 2013Q2

REPORT INFORMATION
  Report Type: Spontaneous
  Country: GB (occurrence: None)
  Receive Date: 20130415
  Receipt Date: 20130415
  Transmission Date: 20140414
  Serious: Yes (Disabling)
  Sender: FDA-Public Use
  Company Number: GER/UKI/13/0028981

PATIENT
  Age: 64 Year
  Sex: Male
  Weight: 86 kg

DRUGS (6)
  1. FINASTERIDE (FINASTERIDE) [Suspect]
     Indication: PRODUCT USED FOR UNKNOWN INDICATION
     Dates: start: 20130130
  2. FINASTERIDE (FINASTERIDE) [Suspect]
     Indication: PRODUCT USED FOR UNKNOWN INDICATION
     Dates: start: 20130130
  3. DICLOFENAC SODIUM (DICLOFENAC SODIUM) [Suspect]
     Indication: PRODUCT USED FOR UNKNOWN INDICATION
     Dates: start: 20121220
  4. DUTASTERIDE [Concomitant]
  5. OMEPRAZOLE [Concomitant]
  6. PROCHLORPERAZINE [Concomitant]

REACTIONS (3)
  - Drug interaction [None]
  - Back pain [None]
  - Condition aggravated [None]
